FAERS Safety Report 26076087 (Version 1)
Quarter: 2025Q4

REPORT INFORMATION
  Report Type: Report from Study
  Country: US (occurrence: US)
  Receive Date: 20251121
  Receipt Date: 20251121
  Transmission Date: 20260118
  Serious: Yes (Other)
  Sender: BAYER HEALTHCARE PHARMACEUTICALS INC.
  Company Number: US-BAYER-2025A149735

PATIENT
  Age: 79 Year
  Sex: Male

DRUGS (6)
  1. KERENDIA [Suspect]
     Active Substance: FINERENONE
     Indication: Chronic kidney disease
     Dosage: 10 MG, QD
     Route: 048
     Dates: start: 20251018
  2. ALLOPURINOL [Concomitant]
     Active Substance: ALLOPURINOL
  3. LORATADINE [Concomitant]
     Active Substance: LORATADINE
  4. BENAZEPRIL [Concomitant]
     Active Substance: BENAZEPRIL HYDROCHLORIDE
  5. PRAVASTATIN [Concomitant]
     Active Substance: PRAVASTATIN
  6. TAMSULOSIN [Concomitant]
     Active Substance: TAMSULOSIN

REACTIONS (2)
  - Blood pressure systolic increased [Unknown]
  - Blood pressure fluctuation [None]

NARRATIVE: CASE EVENT DATE: 20250101
